FAERS Safety Report 4603687-3 (Version None)
Quarter: 2005Q1

REPORT INFORMATION
  Report Type: 
  Country: None (occurrence: None)
  Receive Date: 20050310
  Receipt Date: 20050301
  Transmission Date: 20050727
  Serious: Yes (Other)
  Sender: FDA-Public Use
  Company Number: DE-JNJFOC-20050300961

PATIENT

DRUGS (3)
  1. DURAGESIC-100 [Suspect]
     Indication: DRUG USE FOR UNKNOWN INDICATION
     Route: 062
  2. ZOMETA [Concomitant]
  3. BENDAMUSTIN [Concomitant]
     Route: 065

REACTIONS (2)
  - BLOOD CREATININE INCREASED [None]
  - PERSONALITY CHANGE [None]
